FAERS Safety Report 4728524-8 (Version None)
Quarter: 2005Q3

REPORT INFORMATION
  Report Type: 
  Country: None (occurrence: None)
  Receive Date: 20050729
  Receipt Date: 20050419
  Transmission Date: 20060218
  Serious: No
  Sender: FDA-Public Use
  Company Number: 20050304806

PATIENT
  Age: 66 Year
  Sex: Female
  Weight: 64.1 kg

DRUGS (5)
  1. ZANTAC [Suspect]
     Indication: GASTRIC DISORDER
  2. EXTRA STRENGTH TYLENOL [Suspect]
     Indication: ARTHRITIS
     Dosage: 500MG TWICE PER DAY
     Route: 048
     Dates: start: 20050201, end: 20050301
  3. ASPIRIN [Suspect]
     Indication: DRUG USE FOR UNKNOWN INDICATION
     Route: 065
  4. LIPITOR [Suspect]
     Indication: BLOOD CHOLESTEROL INCREASED
     Route: 065
  5. NORVASC [Concomitant]

REACTIONS (3)
  - STOMATITIS [None]
  - SWOLLEN TONGUE [None]
  - TOOTH EROSION [None]
